FAERS Safety Report 5474650-8 (Version None)
Quarter: 2007Q4

REPORT INFORMATION
  Report Type: 
  Country: None (occurrence: None)
  Receive Date: 20071002
  Receipt Date: 20070918
  Transmission Date: 20080405
  Serious: Yes (Hospitalization)
  Sender: FDA-Public Use
  Company Number: US-ELI_LILLY_AND_COMPANY-US200709003537

PATIENT
  Sex: Female

DRUGS (5)
  1. CYMBALTA [Suspect]
     Dosage: 60 MG, 2/D
  2. BUSPAR [Concomitant]
  3. WELLBUTRIN XL [Concomitant]
  4. COZAAR [Concomitant]
  5. OTHER ANALGESICS AND ANTIPYRETICS [Concomitant]

REACTIONS (1)
  - SURGERY [None]
